FAERS Safety Report 13694817 (Version 3)
Quarter: 2017Q3

REPORT INFORMATION
  Report Type: Spontaneous
  Country: JP (occurrence: JP)
  Receive Date: 20170627
  Receipt Date: 20170927
  Transmission Date: 20171127
  Serious: Yes (Hospitalization)
  Sender: FDA-Public Use
  Company Number: JP-PFIZER INC-2017277948

PATIENT
  Age: 45 Year
  Sex: Female

DRUGS (3)
  1. CELECOX [Suspect]
     Active Substance: CELECOXIB
     Indication: PAIN
     Dosage: UNK
     Route: 048
     Dates: start: 201610, end: 201702
  2. BAYASPIRIN [Concomitant]
     Active Substance: ASPIRIN
     Indication: DIALYSIS
     Dosage: UNK
     Route: 048
  3. CELECOX [Suspect]
     Active Substance: CELECOXIB
     Dosage: 200 MG, 1X/DAY
     Route: 048
     Dates: start: 20170619, end: 201709

REACTIONS (2)
  - Off label use [Unknown]
  - Renal impairment [Unknown]

NARRATIVE: CASE EVENT DATE: 20170619
